FAERS Safety Report 23690658 (Version 2)
Quarter: 2024Q2

REPORT INFORMATION
  Report Type: Spontaneous
  Country: US (occurrence: US)
  Receive Date: 20240401
  Receipt Date: 20240416
  Transmission Date: 20240715
  Serious: No
  Sender: FDA-Public Use
  Company Number: US-SA-SAC20240326000149

PATIENT
  Age: 56 Year
  Sex: Female

DRUGS (1)
  1. NEXVIAZYME [Suspect]
     Active Substance: AVALGLUCOSIDASE ALFA-NGPT
     Dosage: 40 MG/KG, QOW
     Route: 065
     Dates: start: 202309

REACTIONS (8)
  - Disease progression [Unknown]
  - Forced vital capacity decreased [Unknown]
  - Blood creatinine abnormal [Unknown]
  - Blood creatine phosphokinase abnormal [Unknown]
  - Tremor [Unknown]
  - Asthenia [Unknown]
  - Dysstasia [Unknown]
  - Off label use [Unknown]

NARRATIVE: CASE EVENT DATE: 20230901
